FAERS Safety Report 17863918 (Version 1)
Quarter: 2020Q2

REPORT INFORMATION
  Report Type: Spontaneous
  Country: US (occurrence: US)
  Receive Date: 20200604
  Receipt Date: 20200604
  Transmission Date: 20200714
  Serious: Yes (Hospitalization)
  Sender: FDA-Public Use
  Company Number: None

PATIENT
  Sex: Female

DRUGS (4)
  1. ZINC. [Concomitant]
     Active Substance: ZINC
  2. OCTREOTIDE 50MCG [Suspect]
     Active Substance: OCTREOTIDE
     Indication: IRON DEFICIENCY ANAEMIA
     Route: 058
     Dates: start: 20180126
  3. OCTREOTIDE 50MCG [Suspect]
     Active Substance: OCTREOTIDE
     Indication: IRON DEFICIENCY ANAEMIA
  4. OCTREOTIDE 50MCG [Suspect]
     Active Substance: OCTREOTIDE
     Indication: GASTROINTESTINAL ANGIODYSPLASIA
     Route: 058
     Dates: start: 20180126

REACTIONS (1)
  - Infection [None]
